FAERS Safety Report 4655144-6 (Version None)
Quarter: 2005Q2

REPORT INFORMATION
  Report Type: 
  Country: None (occurrence: None)
  Receive Date: 20050505
  Receipt Date: 20050420
  Transmission Date: 20051028
  Serious: Yes (Death)
  Sender: FDA-Public Use
  Company Number: BRO-008498

PATIENT
  Age: 53 Year
  Sex: Male

DRUGS (5)
  1. IOPAMIDOL-300 [Suspect]
     Indication: COMPUTERISED TOMOGRAM ABDOMEN
     Dosage: 100 ML
     Route: 042
     Dates: start: 20050323, end: 20050323
  2. TEPRENONE [Concomitant]
  3. CAMOSTAT MESILATE [Concomitant]
  4. CALCIUM CARBONATE [Concomitant]
  5. CLONAZEPAM [Concomitant]

REACTIONS (3)
  - ANAPHYLACTIC SHOCK [None]
  - CARDIAC ARREST [None]
  - ECZEMA [None]
